FAERS Safety Report 12881446 (Version 6)
Quarter: 2022Q4

REPORT INFORMATION
  Report Type: Spontaneous
  Country: US (occurrence: US)
  Receive Date: 20161025
  Receipt Date: 20221027
  Transmission Date: 20230113
  Serious: Yes (Other)
  Sender: FDA-Public Use
  Company Number: US-JNJFOC-20161011990

PATIENT
  Age: 21 Year
  Sex: Male
  Weight: 128.94 kg

DRUGS (12)
  1. RISPERDAL [Suspect]
     Active Substance: RISPERIDONE
     Indication: Psychotic disorder
     Route: 048
     Dates: start: 20060613
  2. RISPERDAL [Suspect]
     Active Substance: RISPERIDONE
     Indication: Depression
     Dosage: VARYING DOSES OF 0.5 MG TO 4 MG.
     Route: 048
     Dates: start: 20070521
  3. RISPERDAL [Suspect]
     Active Substance: RISPERIDONE
     Indication: Schizoaffective disorder
     Route: 048
     Dates: start: 20080726
  4. RISPERDAL [Suspect]
     Active Substance: RISPERIDONE
     Dosage: VARYING DOSES OF 0.5 MG TO 4 MG.
     Route: 048
     Dates: end: 20080903
  5. RISPERDAL [Suspect]
     Active Substance: RISPERIDONE
     Dosage: VARYING DOSES OF 0.5 MG TO 4 MG.
     Route: 048
     Dates: start: 20100123, end: 20100418
  6. RISPERDAL [Suspect]
     Active Substance: RISPERIDONE
     Dosage: VARYING DOSES OF 1 MG TO 4 MG.
     Route: 048
     Dates: start: 20100716, end: 20140117
  7. RISPERDAL [Suspect]
     Active Substance: RISPERIDONE
     Route: 048
     Dates: end: 2014
  8. RISPERIDONE [Suspect]
     Active Substance: RISPERIDONE
     Indication: Product used for unknown indication
     Route: 048
     Dates: start: 20060613, end: 2014
  9. RISPERIDONE [Suspect]
     Active Substance: RISPERIDONE
     Indication: Product used for unknown indication
     Route: 048
  10. ABILIFY [Suspect]
     Active Substance: ARIPIPRAZOLE
     Indication: Product used for unknown indication
     Route: 065
     Dates: start: 20100128, end: 20100527
  11. GEODON [Suspect]
     Active Substance: ZIPRASIDONE HYDROCHLORIDE\ZIPRASIDONE MESYLATE
     Indication: Product used for unknown indication
     Route: 065
     Dates: start: 20100519
  12. CELEXA [Suspect]
     Active Substance: CITALOPRAM HYDROBROMIDE
     Indication: Product used for unknown indication
     Route: 048
     Dates: end: 20111107

REACTIONS (7)
  - Obesity [Unknown]
  - Emotional disorder [Unknown]
  - Gynaecomastia [Unknown]
  - Sedation complication [Unknown]
  - Treatment noncompliance [Unknown]
  - Fatigue [Unknown]
  - Insomnia [Unknown]

NARRATIVE: CASE EVENT DATE: 20060901
